FAERS Safety Report 8967266 (Version 1)
Quarter: 2012Q4

REPORT INFORMATION
  Report Type: 
  Country: US (occurrence: US)
  Receive Date: 20121214
  Receipt Date: 20121214
  Transmission Date: 20130627
  Serious: No
  Sender: FDA-Public Use
  Company Number: US-GLAXOSMITHKLINE-A0976819A

PATIENT
  Age: 65 Year
  Sex: Male

DRUGS (2)
  1. FLONASE [Suspect]
     Indication: SINUSITIS
     Dosage: 1SPR Per day
     Route: 045
     Dates: start: 20120208
  2. NO CONCURRENT MEDICATION [Concomitant]

REACTIONS (4)
  - Wheezing [Unknown]
  - Respiratory tract congestion [Unknown]
  - Mucous membrane disorder [Unknown]
  - Nasal dryness [Unknown]
